FAERS Safety Report 5598487-4 (Version None)
Quarter: 2008Q1

REPORT INFORMATION
  Report Type: 
  Country: None (occurrence: None)
  Receive Date: 20080122
  Receipt Date: 20080114
  Transmission Date: 20080703
  Serious: Yes (Hospitalization)
  Sender: FDA-Public Use
  Company Number: US-MERCK-0705USA04147

PATIENT
  Age: 47 Year
  Sex: Female

DRUGS (8)
  1. FOSAMAX [Suspect]
     Indication: OSTEOPOROSIS
     Route: 048
     Dates: start: 20000101, end: 20010101
  2. AMBIEN [Concomitant]
     Indication: SOMNOLENCE
     Route: 065
     Dates: start: 20000101
  3. AVELOX [Concomitant]
     Indication: INFECTION
     Route: 065
     Dates: start: 20000101
  4. BIAXIN [Concomitant]
     Indication: INFECTION
     Route: 065
     Dates: start: 20000101
  5. ALBUTEROL [Concomitant]
     Indication: ASTHMA
     Route: 065
     Dates: start: 20000101
  6. GLIPIZIDE [Concomitant]
     Indication: DIABETES MELLITUS
     Route: 065
     Dates: start: 20000101
  7. LOTREL [Concomitant]
     Indication: HYPERTENSION
     Route: 065
     Dates: start: 20000101
  8. ZOCOR [Concomitant]
     Indication: BLOOD CHOLESTEROL INCREASED
     Route: 065
     Dates: start: 20000101

REACTIONS (7)
  - ADVERSE EVENT [None]
  - GINGIVAL BLEEDING [None]
  - IMPAIRED HEALING [None]
  - PAIN IN JAW [None]
  - SINUS DISORDER [None]
  - TOOTH INFECTION [None]
  - TOOTH LOSS [None]
